FAERS Safety Report 8853163 (Version 2)
Quarter: 2012Q4

REPORT INFORMATION
  Report Type: Report from Study
  Country: US (occurrence: US)
  Receive Date: 20121022
  Receipt Date: 20121106
  Transmission Date: 20130627
  Serious: Yes (Hospitalization)
  Sender: FDA-Public Use
  Company Number: US-ABBOTT-12P-163-0995305-00

PATIENT
  Age: 39 Year
  Sex: Female

DRUGS (4)
  1. HUMIRA [Suspect]
     Indication: PSORIASIS
     Dates: start: 201111, end: 201210
  2. TOPICAL MEDICATIONS [Concomitant]
     Indication: PSORIASIS
  3. CLONAZEPAM [Concomitant]
     Indication: PRODUCT USED FOR UNKNOWN INDICATION
  4. ZOLPIDEM [Concomitant]
     Indication: PRODUCT USED FOR UNKNOWN INDICATION

REACTIONS (3)
  - Lymphadenitis [Recovering/Resolving]
  - Disturbance in attention [Not Recovered/Not Resolved]
  - Drug dose omission [Not Recovered/Not Resolved]
